FAERS Safety Report 24822638 (Version 1)
Quarter: 2025Q1

REPORT INFORMATION
  Report Type: Report from Study
  Country: US (occurrence: US)
  Receive Date: 20250109
  Receipt Date: 20250109
  Transmission Date: 20250409
  Serious: Yes (Other)
  Sender: ABBVIE
  Company Number: US-ABBVIE-6071445

PATIENT
  Age: 66 Year
  Sex: Male

DRUGS (1)
  1. SKYRIZI [Suspect]
     Active Substance: RISANKIZUMAB-RZAA
     Indication: Psoriasis
     Route: 058
     Dates: start: 20221129

REACTIONS (5)
  - Skin haemorrhage [Not Recovered/Not Resolved]
  - Nerve compression [Recovered/Resolved]
  - Parkinson^s disease [Not Recovered/Not Resolved]
  - Muir-Torre syndrome [Unknown]
  - Papule [Not Recovered/Not Resolved]

NARRATIVE: CASE EVENT DATE: 20240801
